FAERS Safety Report 23684799 (Version 7)
Quarter: 2025Q1

REPORT INFORMATION
  Report Type: Report from Study
  Country: CA (occurrence: CA)
  Receive Date: 20240328
  Receipt Date: 20250311
  Transmission Date: 20250409
  Serious: Yes (Other)
  Sender: BRISTOL-MYERS SQUIBB COMPANY
  Company Number: CA-BRISTOL-MYERS SQUIBB COMPANY-2024-046759

PATIENT
  Age: 53 Year
  Sex: Male

DRUGS (162)
  1. TRIAMCINOLONE ACETONIDE [Suspect]
     Active Substance: TRIAMCINOLONE ACETONIDE
     Indication: Migraine
  2. TRIAMCINOLONE ACETONIDE [Suspect]
     Active Substance: TRIAMCINOLONE ACETONIDE
     Indication: Migraine
  3. TRIAMCINOLONE ACETONIDE [Suspect]
     Active Substance: TRIAMCINOLONE ACETONIDE
     Indication: Migraine
  4. ALMOTRIPTAN MALATE [Concomitant]
     Active Substance: ALMOTRIPTAN MALATE
     Indication: Product used for unknown indication
  5. ALMOTRIPTAN MALATE [Concomitant]
     Active Substance: ALMOTRIPTAN MALATE
  6. ALMOTRIPTAN MALATE [Concomitant]
     Active Substance: ALMOTRIPTAN MALATE
  7. ALMOTRIPTAN MALATE [Concomitant]
     Active Substance: ALMOTRIPTAN MALATE
  8. ALMOTRIPTAN MALATE [Concomitant]
     Active Substance: ALMOTRIPTAN MALATE
  9. ALMOTRIPTAN MALATE [Concomitant]
     Active Substance: ALMOTRIPTAN MALATE
  10. ALMOTRIPTAN MALATE [Concomitant]
     Active Substance: ALMOTRIPTAN MALATE
  11. ALMOTRIPTAN MALATE [Concomitant]
     Active Substance: ALMOTRIPTAN MALATE
  12. ALMOTRIPTAN MALATE [Concomitant]
     Active Substance: ALMOTRIPTAN MALATE
  13. ALMOTRIPTAN MALATE [Concomitant]
     Active Substance: ALMOTRIPTAN MALATE
  14. ALMOTRIPTAN MALATE [Concomitant]
     Active Substance: ALMOTRIPTAN MALATE
  15. ALMOTRIPTAN MALATE [Concomitant]
     Active Substance: ALMOTRIPTAN MALATE
  16. ALMOTRIPTAN MALATE [Concomitant]
     Active Substance: ALMOTRIPTAN MALATE
  17. ALMOTRIPTAN MALATE [Concomitant]
     Active Substance: ALMOTRIPTAN MALATE
  18. ALMOTRIPTAN MALATE [Concomitant]
     Active Substance: ALMOTRIPTAN MALATE
  19. ALMOTRIPTAN MALATE [Concomitant]
     Active Substance: ALMOTRIPTAN MALATE
  20. ALMOTRIPTAN MALATE [Concomitant]
     Active Substance: ALMOTRIPTAN MALATE
  21. ALMOTRIPTAN MALATE [Concomitant]
     Active Substance: ALMOTRIPTAN MALATE
  22. ALMOTRIPTAN MALATE [Concomitant]
     Active Substance: ALMOTRIPTAN MALATE
  23. ALMOTRIPTAN MALATE [Concomitant]
     Active Substance: ALMOTRIPTAN MALATE
  24. ALMOTRIPTAN MALATE [Concomitant]
     Active Substance: ALMOTRIPTAN MALATE
  25. ALMOTRIPTAN MALATE [Concomitant]
     Active Substance: ALMOTRIPTAN MALATE
  26. ALMOTRIPTAN MALATE [Concomitant]
     Active Substance: ALMOTRIPTAN MALATE
  27. ALMOTRIPTAN MALATE [Concomitant]
     Active Substance: ALMOTRIPTAN MALATE
  28. ALMOTRIPTAN MALATE [Concomitant]
     Active Substance: ALMOTRIPTAN MALATE
  29. ALMOTRIPTAN MALATE [Concomitant]
     Active Substance: ALMOTRIPTAN MALATE
  30. ALMOTRIPTAN MALATE [Concomitant]
     Active Substance: ALMOTRIPTAN MALATE
  31. ALMOTRIPTAN MALATE [Concomitant]
     Active Substance: ALMOTRIPTAN MALATE
  32. ALMOTRIPTAN MALATE [Concomitant]
     Active Substance: ALMOTRIPTAN MALATE
  33. ALMOTRIPTAN MALATE [Concomitant]
     Active Substance: ALMOTRIPTAN MALATE
  34. AMITRIPTYLINE HYDROCHLORIDE [Concomitant]
     Active Substance: AMITRIPTYLINE HYDROCHLORIDE
     Indication: Product used for unknown indication
  35. BOTOX [Concomitant]
     Active Substance: ONABOTULINUMTOXINA
     Indication: Product used for unknown indication
     Route: 030
  36. BOTOX [Concomitant]
     Active Substance: ONABOTULINUMTOXINA
     Route: 030
  37. BOTOX [Concomitant]
     Active Substance: ONABOTULINUMTOXINA
  38. BOTOX [Concomitant]
     Active Substance: ONABOTULINUMTOXINA
  39. BOTOX [Concomitant]
     Active Substance: ONABOTULINUMTOXINA
  40. BOTOX [Concomitant]
     Active Substance: ONABOTULINUMTOXINA
  41. BOTOX [Concomitant]
     Active Substance: ONABOTULINUMTOXINA
  42. BOTOX [Concomitant]
     Active Substance: ONABOTULINUMTOXINA
  43. BOTOX [Concomitant]
     Active Substance: ONABOTULINUMTOXINA
  44. BOTOX [Concomitant]
     Active Substance: ONABOTULINUMTOXINA
  45. BOTULINUM TOXIN TYPE A [Concomitant]
     Active Substance: BOTULINUM TOXIN TYPE A
     Indication: Product used for unknown indication
     Route: 030
  46. BOTULINUM TOXIN TYPE A [Concomitant]
     Active Substance: BOTULINUM TOXIN TYPE A
  47. CELEBREX [Concomitant]
     Active Substance: CELECOXIB
     Indication: Product used for unknown indication
  48. CODEINE PHOSPHATE [Concomitant]
     Active Substance: CODEINE PHOSPHATE
     Indication: Migraine
  49. DEMEROL [Concomitant]
     Active Substance: MEPERIDINE HYDROCHLORIDE
     Indication: Product used for unknown indication
  50. DEMEROL [Concomitant]
     Active Substance: MEPERIDINE HYDROCHLORIDE
  51. DEMEROL [Concomitant]
     Active Substance: MEPERIDINE HYDROCHLORIDE
  52. DEMEROL [Concomitant]
     Active Substance: MEPERIDINE HYDROCHLORIDE
  53. DEMEROL [Concomitant]
     Active Substance: MEPERIDINE HYDROCHLORIDE
  54. DEMEROL [Concomitant]
     Active Substance: MEPERIDINE HYDROCHLORIDE
  55. DEMEROL [Concomitant]
     Active Substance: MEPERIDINE HYDROCHLORIDE
  56. DEMEROL [Concomitant]
     Active Substance: MEPERIDINE HYDROCHLORIDE
  57. DEMEROL [Concomitant]
     Active Substance: MEPERIDINE HYDROCHLORIDE
  58. DEMEROL [Concomitant]
     Active Substance: MEPERIDINE HYDROCHLORIDE
  59. DICLOFENAC [Concomitant]
     Active Substance: DICLOFENAC
     Indication: Migraine
  60. DICLOFENAC [Concomitant]
     Active Substance: DICLOFENAC
  61. DICLOFENAC [Concomitant]
     Active Substance: DICLOFENAC
  62. DICLOFENAC SODIUM [Concomitant]
     Active Substance: DICLOFENAC SODIUM
     Indication: Migraine
  63. DIHYDROERGOTAMINE [Concomitant]
     Active Substance: DIHYDROERGOTAMINE
     Indication: Migraine
  64. DIHYDROERGOTAMINE MESYLATE [Concomitant]
     Active Substance: DIHYDROERGOTAMINE MESYLATE
     Indication: Migraine
  65. DIHYDROERGOTAMINE MESYLATE [Concomitant]
     Active Substance: DIHYDROERGOTAMINE MESYLATE
  66. DULOXETINE HYDROCHLORIDE [Concomitant]
     Active Substance: DULOXETINE HYDROCHLORIDE
     Indication: Migraine
     Route: 048
  67. DULOXETINE HYDROCHLORIDE [Concomitant]
     Active Substance: DULOXETINE HYDROCHLORIDE
  68. DULOXETINE HYDROCHLORIDE [Concomitant]
     Active Substance: DULOXETINE HYDROCHLORIDE
  69. ENDOCET [Concomitant]
     Active Substance: ACETAMINOPHEN\OXYCODONE HYDROCHLORIDE
     Indication: Migraine
     Route: 048
  70. ESOMEPRAZOLE MAGNESIUM [Concomitant]
     Active Substance: ESOMEPRAZOLE MAGNESIUM
     Indication: Product used for unknown indication
     Route: 048
  71. ESOMEPRAZOLE MAGNESIUM [Concomitant]
     Active Substance: ESOMEPRAZOLE MAGNESIUM
     Route: 048
  72. ESOMEPRAZOLE MAGNESIUM [Concomitant]
     Active Substance: ESOMEPRAZOLE MAGNESIUM
  73. ESOMEPRAZOLE MAGNESIUM [Concomitant]
     Active Substance: ESOMEPRAZOLE MAGNESIUM
  74. ESOMEPRAZOLE MAGNESIUM\NAPROXEN [Concomitant]
     Active Substance: ESOMEPRAZOLE MAGNESIUM\NAPROXEN
     Indication: Product used for unknown indication
     Route: 048
  75. ESOMEPRAZOLE MAGNESIUM\NAPROXEN [Concomitant]
     Active Substance: ESOMEPRAZOLE MAGNESIUM\NAPROXEN
     Route: 048
  76. HYDROMORPHONE [Concomitant]
     Active Substance: HYDROMORPHONE
     Indication: Migraine
  77. ESOMEPRAZOLE MAGNESIUM\NAPROXEN [Concomitant]
     Active Substance: ESOMEPRAZOLE MAGNESIUM\NAPROXEN
     Indication: Product used for unknown indication
  78. ESOMEPRAZOLE MAGNESIUM\NAPROXEN [Concomitant]
     Active Substance: ESOMEPRAZOLE MAGNESIUM\NAPROXEN
     Route: 048
  79. HYDROMORPHONE HYDROCHLORIDE [Concomitant]
     Active Substance: HYDROMORPHONE HYDROCHLORIDE
     Indication: Migraine
  80. IBUPROFEN [Concomitant]
     Active Substance: IBUPROFEN
     Indication: Product used for unknown indication
  81. KETAMINE [Concomitant]
     Active Substance: KETAMINE
     Indication: Migraine
  82. KETAMINE HYDROCHLORIDE [Concomitant]
     Active Substance: KETAMINE HYDROCHLORIDE
     Indication: Migraine
  83. KETAMINE HYDROCHLORIDE [Concomitant]
     Active Substance: KETAMINE HYDROCHLORIDE
  84. MAXALT [Concomitant]
     Active Substance: RIZATRIPTAN BENZOATE
     Indication: Product used for unknown indication
  85. MORPHINE [Concomitant]
     Active Substance: MORPHINE
     Indication: Migraine
  86. MORPHINE [Concomitant]
     Active Substance: MORPHINE
  87. MORPHINE [Concomitant]
     Active Substance: MORPHINE
  88. MORPHINE SULFATE [Concomitant]
     Active Substance: MORPHINE SULFATE
     Indication: Migraine
  89. NAPROXEN [Concomitant]
     Active Substance: NAPROXEN
     Indication: Product used for unknown indication
     Route: 048
  90. NAPROXEN [Concomitant]
     Active Substance: NAPROXEN
  91. NORTRIPTYLINE [Concomitant]
     Active Substance: NORTRIPTYLINE
     Indication: Product used for unknown indication
  92. NORTRIPTYLINE HYDROCHLORIDE [Concomitant]
     Active Substance: NORTRIPTYLINE HYDROCHLORIDE
     Indication: Product used for unknown indication
  93. ONDANSETRON HYDROCHLORIDE [Concomitant]
     Active Substance: ONDANSETRON HYDROCHLORIDE
     Indication: Migraine
  94. PROPRANOLOL [Concomitant]
     Active Substance: PROPRANOLOL HYDROCHLORIDE
     Indication: Migraine
  95. PROPRANOLOL HYDROCHLORIDE [Concomitant]
     Active Substance: PROPRANOLOL HYDROCHLORIDE
     Indication: Migraine
  96. TENORETIC [Concomitant]
     Active Substance: ATENOLOL\CHLORTHALIDONE
     Indication: Product used for unknown indication
     Route: 048
  97. TENORETIC [Concomitant]
     Active Substance: ATENOLOL\CHLORTHALIDONE
     Route: 048
  98. TENORETIC [Concomitant]
     Active Substance: ATENOLOL\CHLORTHALIDONE
  99. DULOXETINE [Concomitant]
     Active Substance: DULOXETINE
     Indication: Migraine
     Route: 048
  100. DULOXETINE [Concomitant]
     Active Substance: DULOXETINE
     Route: 048
  101. TOPIRAMATE [Concomitant]
     Active Substance: TOPIRAMATE
     Indication: Migraine
  102. TOPIRAMATE [Concomitant]
     Active Substance: TOPIRAMATE
     Route: 048
  103. TORADOL [Concomitant]
     Active Substance: KETOROLAC TROMETHAMINE
     Indication: Migraine
  104. TORADOL [Concomitant]
     Active Substance: KETOROLAC TROMETHAMINE
  105. TRAMADOL HYDROCHLORIDE [Concomitant]
     Active Substance: TRAMADOL HYDROCHLORIDE
     Indication: Migraine
  106. TYLENOL [Concomitant]
     Active Substance: ACETAMINOPHEN
     Indication: Product used for unknown indication
  107. VENLAFAXINE HYDROCHLORIDE [Concomitant]
     Active Substance: VENLAFAXINE HYDROCHLORIDE
     Indication: Migraine
  108. VENLAFAXINE HYDROCHLORIDE [Concomitant]
     Active Substance: VENLAFAXINE HYDROCHLORIDE
  109. ZOFRAN [Concomitant]
     Active Substance: ONDANSETRON HYDROCHLORIDE
     Indication: Migraine
  110. DICLOFENAC [Concomitant]
     Active Substance: DICLOFENAC
     Indication: Migraine
  111. VIMOVO [Concomitant]
     Active Substance: ESOMEPRAZOLE MAGNESIUM\NAPROXEN
     Indication: Product used for unknown indication
  112. GABAPENTIN [Concomitant]
     Active Substance: GABAPENTIN
     Indication: Product used for unknown indication
  113. AMITRIPTYLINE [Concomitant]
     Active Substance: AMITRIPTYLINE
     Indication: Product used for unknown indication
  114. AMITRIPTYLINE [Concomitant]
     Active Substance: AMITRIPTYLINE
  115. AMITRIPTYLINE [Concomitant]
     Active Substance: AMITRIPTYLINE
  116. AMITRIPTYLINE [Concomitant]
     Active Substance: AMITRIPTYLINE
  117. AMITRIPTYLINE [Concomitant]
     Active Substance: AMITRIPTYLINE
  118. AMITRIPTYLINE [Concomitant]
     Active Substance: AMITRIPTYLINE
  119. AMITRIPTYLINE [Concomitant]
     Active Substance: AMITRIPTYLINE
  120. AMITRIPTYLINE [Concomitant]
     Active Substance: AMITRIPTYLINE
  121. AMITRIPTYLINE [Concomitant]
     Active Substance: AMITRIPTYLINE
  122. AMITRIPTYLINE [Concomitant]
     Active Substance: AMITRIPTYLINE
  123. ACETAMINOPHEN [Concomitant]
     Active Substance: ACETAMINOPHEN
     Indication: Product used for unknown indication
  124. CODEINE [Concomitant]
     Active Substance: CODEINE
     Indication: Migraine
  125. CODEINE [Concomitant]
     Active Substance: CODEINE
  126. CODEINE [Concomitant]
     Active Substance: CODEINE
  127. CODEINE [Concomitant]
     Active Substance: CODEINE
  128. CODEINE [Concomitant]
     Active Substance: CODEINE
  129. CODEINE [Concomitant]
     Active Substance: CODEINE
  130. CODEINE [Concomitant]
     Active Substance: CODEINE
  131. CODEINE [Concomitant]
     Active Substance: CODEINE
  132. CODEINE [Concomitant]
     Active Substance: CODEINE
  133. CODEINE [Concomitant]
     Active Substance: CODEINE
  134. CODEINE [Concomitant]
     Active Substance: CODEINE
  135. CODEINE [Concomitant]
     Active Substance: CODEINE
  136. DICLOFENAC POTASSIUM [Concomitant]
     Active Substance: DICLOFENAC POTASSIUM
     Indication: Migraine
  137. EFFEXOR [Concomitant]
     Active Substance: VENLAFAXINE HYDROCHLORIDE
     Indication: Product used for unknown indication
  138. TRAMADOL HYDROCHLORIDE [Concomitant]
     Active Substance: TRAMADOL HYDROCHLORIDE
     Indication: Migraine
  139. ONDANSETRON [Concomitant]
     Active Substance: ONDANSETRON
     Indication: Migraine
  140. ONDANSETRON [Concomitant]
     Active Substance: ONDANSETRON
  141. ACETAMINOPHEN\OXYCODONE HYDROCHLORIDE [Concomitant]
     Active Substance: ACETAMINOPHEN\OXYCODONE HYDROCHLORIDE
     Indication: Migraine
  142. ACETAMINOPHEN\OXYCODONE HYDROCHLORIDE [Concomitant]
     Active Substance: ACETAMINOPHEN\OXYCODONE HYDROCHLORIDE
  143. ACETAMINOPHEN\OXYCODONE HYDROCHLORIDE [Concomitant]
     Active Substance: ACETAMINOPHEN\OXYCODONE HYDROCHLORIDE
  144. ACETAMINOPHEN\OXYCODONE HYDROCHLORIDE [Concomitant]
     Active Substance: ACETAMINOPHEN\OXYCODONE HYDROCHLORIDE
  145. ACETAMINOPHEN\OXYCODONE HYDROCHLORIDE [Concomitant]
     Active Substance: ACETAMINOPHEN\OXYCODONE HYDROCHLORIDE
  146. ACETAMINOPHEN\TRAMADOL HYDROCHLORIDE [Concomitant]
     Active Substance: ACETAMINOPHEN\TRAMADOL HYDROCHLORIDE
     Indication: Migraine
     Route: 048
  147. ACETAMINOPHEN\TRAMADOL HYDROCHLORIDE [Concomitant]
     Active Substance: ACETAMINOPHEN\TRAMADOL HYDROCHLORIDE
  148. ACETAMINOPHEN\TRAMADOL HYDROCHLORIDE [Concomitant]
     Active Substance: ACETAMINOPHEN\TRAMADOL HYDROCHLORIDE
  149. ACETAMINOPHEN\TRAMADOL HYDROCHLORIDE [Concomitant]
     Active Substance: ACETAMINOPHEN\TRAMADOL HYDROCHLORIDE
  150. ACETAMINOPHEN\TRAMADOL HYDROCHLORIDE [Concomitant]
     Active Substance: ACETAMINOPHEN\TRAMADOL HYDROCHLORIDE
  151. ACETAMINOPHEN\TRAMADOL HYDROCHLORIDE [Concomitant]
     Active Substance: ACETAMINOPHEN\TRAMADOL HYDROCHLORIDE
  152. DICLOFENAC DIETHYLAMINE [Concomitant]
     Active Substance: DICLOFENAC DIETHYLAMINE
     Indication: Migraine
  153. TOPAMAX [Concomitant]
     Active Substance: TOPIRAMATE
     Indication: Product used for unknown indication
  154. DICLOFENAC DIETHYLAMINE [Concomitant]
     Active Substance: DICLOFENAC DIETHYLAMINE
     Indication: Migraine
  155. ACETAMINOPHEN AND CODEINE [Concomitant]
     Active Substance: ACETAMINOPHEN\CODEINE PHOSPHATE
     Indication: Product used for unknown indication
  156. ACETAMINOPHEN AND CODEINE [Concomitant]
     Active Substance: ACETAMINOPHEN\CODEINE PHOSPHATE
  157. ACETAMINOPHEN AND CODEINE [Concomitant]
     Active Substance: ACETAMINOPHEN\CODEINE PHOSPHATE
  158. DIPHENHYDRAMINE HYDROCHLORIDE\IBUPROFEN [Concomitant]
     Active Substance: DIPHENHYDRAMINE HYDROCHLORIDE\IBUPROFEN
     Indication: Product used for unknown indication
  159. CODEINE SULFATE [Concomitant]
     Active Substance: CODEINE SULFATE
     Indication: Migraine
     Route: 048
  160. CODEINE SULFATE [Concomitant]
     Active Substance: CODEINE SULFATE
     Route: 048
  161. TRIACETIN [Concomitant]
     Active Substance: TRIACETIN
     Indication: Product used for unknown indication
  162. TRIACETIN [Concomitant]
     Active Substance: TRIACETIN

REACTIONS (7)
  - Drug ineffective [Unknown]
  - Hyperhidrosis [Unknown]
  - Nausea [Unknown]
  - Nephrolithiasis [Unknown]
  - Nightmare [Unknown]
  - Off label use [Unknown]
  - Sedation [Unknown]
